FAERS Safety Report 23345950 (Version 1)
Quarter: 2023Q4

REPORT INFORMATION
  Report Type: Spontaneous
  Country: US (occurrence: None)
  Receive Date: 20231227
  Receipt Date: 20231227
  Transmission Date: 20240109
  Serious: Yes (Disabling)
  Sender: FDA-Public Use
  Company Number: None

PATIENT
  Age: 64 Year
  Sex: Female
  Weight: 63 kg

DRUGS (8)
  1. CIPROFLOXACIN [Suspect]
     Active Substance: CIPROFLOXACIN
     Indication: Bacterial infection
     Dosage: OTHER QUANTITY : 14 TABLET(S);?FREQUENCY : TWICE A DAY;?
     Route: 048
     Dates: start: 20231220, end: 20231220
  2. TIROSINT [Concomitant]
     Active Substance: LEVOTHYROXINE SODIUM
  3. VALSARTAN [Concomitant]
     Active Substance: VALSARTAN
  4. HYDROCHLOROTHIAZIDE [Concomitant]
     Active Substance: HYDROCHLOROTHIAZIDE
  5. VITAMIN D3 [Concomitant]
     Active Substance: CHOLECALCIFEROL
  6. JWH-018 [Concomitant]
     Active Substance: JWH-018
  7. PROBIOTICS NOS [Concomitant]
     Active Substance: PROBIOTICS NOS
  8. VITAMINS [Concomitant]
     Active Substance: VITAMINS

REACTIONS (5)
  - Pain in extremity [None]
  - Pain in extremity [None]
  - Pain in extremity [None]
  - Pain in extremity [None]
  - Pyrexia [None]

NARRATIVE: CASE EVENT DATE: 20231220
